FAERS Safety Report 23129721 (Version 2)
Quarter: 2023Q4

REPORT INFORMATION
  Report Type: Report from Study
  Country: CO (occurrence: CO)
  Receive Date: 20231031
  Receipt Date: 20231211
  Transmission Date: 20240110
  Serious: Yes (Hospitalization)
  Sender: FDA-Public Use
  Company Number: CO-AstraZeneca-2023A242287

PATIENT
  Age: 255 Day
  Sex: Male
  Weight: 7 kg

DRUGS (1)
  1. SYNAGIS [Suspect]
     Active Substance: PALIVIZUMAB
     Indication: Respiratory syncytial virus infection
     Dosage: 15 MG/KG, MONTHLY
     Route: 030
     Dates: start: 20230607

REACTIONS (1)
  - Tracheitis [Recovering/Resolving]

NARRATIVE: CASE EVENT DATE: 20231019
